FAERS Safety Report 9218050 (Version 5)
Quarter: 2016Q3

REPORT INFORMATION
  Report Type: Spontaneous
  Country: US (occurrence: US)
  Receive Date: 20130408
  Receipt Date: 20160801
  Transmission Date: 20161109
  Serious: Yes (Hospitalization, Other)
  Sender: FDA-Public Use
  Company Number: US-009507513-1304USA002497

PATIENT
  Sex: Male
  Weight: 95.24 kg

DRUGS (1)
  1. PROPECIA [Suspect]
     Active Substance: FINASTERIDE
     Indication: ALOPECIA
     Dosage: 1 MG, QD
     Route: 048
     Dates: start: 20030509, end: 20120528

REACTIONS (16)
  - Cardiac disorder [Unknown]
  - Sexual dysfunction [Not Recovered/Not Resolved]
  - Hyperlipidaemia [Unknown]
  - Myocardial infarction [Unknown]
  - Hypercholesterolaemia [Unknown]
  - Hypertension [Unknown]
  - Cognitive disorder [Not Recovered/Not Resolved]
  - Anxiety [Unknown]
  - Organic erectile dysfunction [Not Recovered/Not Resolved]
  - Fatigue [Unknown]
  - Loss of libido [Not Recovered/Not Resolved]
  - Partner stress [Unknown]
  - Hypogonadism male [Not Recovered/Not Resolved]
  - Infertility [Unknown]
  - Penis injury [Unknown]
  - Cardiac disorder [Unknown]

NARRATIVE: CASE EVENT DATE: 2009
